FAERS Safety Report 25958318 (Version 1)
Quarter: 2025Q4

REPORT INFORMATION
  Report Type: Spontaneous
  Country: JP (occurrence: JP)
  Receive Date: 20251024
  Receipt Date: 20251024
  Transmission Date: 20260117
  Serious: Yes (Death, Other)
  Sender: ABBVIE
  Company Number: JP-JNJFOC-20251029222

PATIENT
  Age: 58 Year
  Sex: Male

DRUGS (2)
  1. IMBRUVICA [Suspect]
     Active Substance: IBRUTINIB
     Indication: Chronic graft versus host disease
     Dosage: DOSE UNKNOWN
     Route: 048
  2. BELUMOSUDIL MESYLATE [Concomitant]
     Active Substance: BELUMOSUDIL MESYLATE
     Indication: Chronic graft versus host disease
     Dosage: DOSE UNKNOWN
     Route: 065

REACTIONS (2)
  - Respiratory failure [Fatal]
  - Pulmonary alveolar haemorrhage [Unknown]
